FAERS Safety Report 6054958-8 (Version None)
Quarter: 2009Q1

REPORT INFORMATION
  Report Type: 
  Country: None (occurrence: None)
  Receive Date: 20090123
  Receipt Date: 20090109
  Transmission Date: 20090719
  Serious: Yes (Life-Threatening, Hospitalization)
  Sender: FDA-Public Use
  Company Number: 2008SP025405

PATIENT
  Age: 67 Year
  Sex: Male

DRUGS (5)
  1. INTEGRILIN [Suspect]
     Indication: CORONARY ANGIOPLASTY
     Dosage: 20 MG; ONCE; IV
     Route: 042
     Dates: start: 20050906, end: 20050906
  2. INTEGRILIN [Suspect]
     Indication: CORONARY ANGIOPLASTY
     Dosage: 20 MG; ONCE; IV
     Route: 042
     Dates: start: 20050926, end: 20050926
  3. ASPIRIN [Concomitant]
  4. PLAVIX [Concomitant]
  5. HEPARIN [Concomitant]

REACTIONS (13)
  - ARTERY DISSECTION [None]
  - BLOOD IMMUNOGLOBULIN G ABNORMAL [None]
  - CARDIAC PROCEDURE COMPLICATION [None]
  - CARDIAC TAMPONADE [None]
  - GASTROINTESTINAL HAEMORRHAGE [None]
  - LEFT VENTRICULAR FAILURE [None]
  - MEGAKARYOCYTES DECREASED [None]
  - PERICARDIAL HAEMORRHAGE [None]
  - PULMONARY OEDEMA [None]
  - PUNCTURE SITE HAEMORRHAGE [None]
  - RENAL IMPAIRMENT [None]
  - SKIN HAEMORRHAGE [None]
  - THROMBOCYTOPENIA [None]
